FAERS Safety Report 4837769-8 (Version None)
Quarter: 2005Q4

REPORT INFORMATION
  Report Type: 
  Country: None (occurrence: None)
  Receive Date: 20051128
  Receipt Date: 20051114
  Transmission Date: 20060501
  Serious: Yes (Death)
  Sender: FDA-Public Use
  Company Number: US-AMGEN-US157968

PATIENT
  Sex: Female
  Weight: 42.7 kg

DRUGS (1)
  1. NEULASTA [Suspect]
     Indication: CHEMOTHERAPY
     Dates: start: 20050823, end: 20050823

REACTIONS (4)
  - ACUTE RESPIRATORY FAILURE [None]
  - CIRCULATORY COLLAPSE [None]
  - CYANOSIS [None]
  - HYPERSENSITIVITY [None]
